FAERS Safety Report 6527176-4 (Version None)
Quarter: 2010Q1

REPORT INFORMATION
  Report Type: 
  Country: None (occurrence: None)
  Receive Date: 20100105
  Receipt Date: 20091228
  Transmission Date: 20100710
  Serious: Yes (Hospitalization)
  Sender: FDA-Public Use
  Company Number: B0621122A

PATIENT
  Sex: Male

DRUGS (4)
  1. SEREVENT [Suspect]
     Indication: ASTHMA
     Route: 055
     Dates: end: 20091022
  2. BECOTIDE [Suspect]
     Indication: ASTHMA
     Route: 055
     Dates: end: 20091022
  3. PREVISCAN [Suspect]
     Indication: AORTIC VALVE INCOMPETENCE
     Route: 048
     Dates: end: 20091203
  4. CARDENSIEL [Suspect]
     Route: 048
     Dates: end: 20091022

REACTIONS (4)
  - EPISTAXIS [None]
  - GASTROINTESTINAL HAEMORRHAGE [None]
  - MELAENA [None]
  - THROMBOCYTOPENIA [None]
